FAERS Safety Report 11088148 (Version 3)
Quarter: 2015Q2

REPORT INFORMATION
  Report Type: Spontaneous
  Country: KR (occurrence: KR)
  Receive Date: 20150504
  Receipt Date: 20150526
  Transmission Date: 20150821
  Serious: Yes (Life-Threatening)
  Sender: FDA-Public Use
  Company Number: KR-PFIZER INC-2015148425

PATIENT
  Age: 81 Year
  Sex: Female

DRUGS (3)
  1. TYGACIL [Suspect]
     Active Substance: TIGECYCLINE
     Indication: SKIN INFECTION
     Dosage: 100 MG, UNK
     Route: 042
     Dates: start: 20150425, end: 201504
  2. RISPERIDONE. [Concomitant]
     Active Substance: RISPERIDONE
     Dosage: 5 MG, SINGLE
     Route: 030
     Dates: start: 20150425, end: 20150425
  3. TYGACIL [Suspect]
     Active Substance: TIGECYCLINE
     Indication: SOFT TISSUE INFECTION
     Dosage: 50 MG, 2X/DAY
     Route: 042
     Dates: start: 201504, end: 20150429

REACTIONS (1)
  - Epilepsy [Not Recovered/Not Resolved]

NARRATIVE: CASE EVENT DATE: 20150428
